FAERS Safety Report 10161800 (Version 3)
Quarter: 2014Q2

REPORT INFORMATION
  Report Type: Report from Study
  Country: NL (occurrence: NL)
  Receive Date: 20140509
  Receipt Date: 20140523
  Transmission Date: 20141212
  Serious: Yes (Hospitalization)
  Sender: FDA-Public Use
  Company Number: NL-ROCHE-1347921

PATIENT
  Age: 68 Year
  Sex: Male

DRUGS (5)
  1. CAPECITABINE [Suspect]
     Indication: GASTRIC CANCER
     Dosage: DATE OF LAST TREATMENT  24/JAN/2014 (PRIOR TO STOMACH ACHE AND ATRIAL FIBRILLATION)?CUMULATIVE DOSE:
     Route: 048
     Dates: start: 20140103, end: 20140422
  2. EPIRUBICIN [Suspect]
     Indication: GASTRIC CANCER
     Dosage: DATE OF LAST TREATMENT: 24/JAN/2014 (PRIOR TO STOMACH ACHE AND ATRIAL FIBRILLATION)?DATE OF LAST TRE
     Route: 042
     Dates: start: 20140103
  3. CISPLATIN [Suspect]
     Indication: GASTRIC CANCER
     Dosage: DATE OF LAST TREATMENT ON 24/JAN/2014 (PRIOR TO STOMACH ACHE AND ATRIAL FIBRILLATION)?DATE OF LAST T
     Route: 042
     Dates: start: 20140103
  4. ENTOCORT [Concomitant]
     Route: 065
     Dates: start: 20140214, end: 20140330
  5. AUGMENTIN [Concomitant]
     Route: 065
     Dates: start: 20140214, end: 20140220

REACTIONS (4)
  - Atrial fibrillation [Recovered/Resolved]
  - Abdominal pain upper [Recovered/Resolved]
  - Abdominal pain [Recovered/Resolved]
  - Malaise [Recovered/Resolved]
